FAERS Safety Report 7533467-0 (Version None)
Quarter: 2011Q2

REPORT INFORMATION
  Report Type: 
  Country: None (occurrence: None)
  Receive Date: 20110608
  Receipt Date: 20110601
  Transmission Date: 20111010
  Serious: Yes (Other)
  Sender: FDA-Public Use
  Company Number: US-CEPHALON-2011000058

PATIENT
  Sex: Female
  Weight: 59 kg

DRUGS (6)
  1. ABILIFY [Concomitant]
     Dates: start: 20100201, end: 20110103
  2. MICROGESTIN 1.5/30 [Concomitant]
     Dates: start: 20100822, end: 20101227
  3. NUVIGIL [Suspect]
     Indication: DEPRESSION
     Route: 048
     Dates: start: 20101104, end: 20110101
  4. NUVIGIL [Suspect]
     Route: 048
     Dates: start: 20110104, end: 20110104
  5. VALPROIC ACID [Concomitant]
     Dates: start: 20091201, end: 20101226
  6. MULTIVITAMIN/DHA [Concomitant]
     Dates: start: 20000101

REACTIONS (2)
  - DRUG EXPOSURE DURING PREGNANCY [None]
  - ABORTION SPONTANEOUS [None]
